FAERS Safety Report 7235097-7 (Version None)
Quarter: 2011Q1

REPORT INFORMATION
  Report Type: 
  Country: None (occurrence: None)
  Receive Date: 20110114
  Receipt Date: 20110114
  Transmission Date: 20110831
  Serious: Yes (Other)
  Sender: FDA-Public Use
  Company Number: None

PATIENT
  Age: 58 Year
  Sex: Female
  Weight: 65.7716 kg

DRUGS (2)
  1. FOSAMAX PLUS D [Suspect]
     Indication: OSTEOPENIA
     Dosage: 35 MG 2800 IU 1 X WEEK PO, 70 MG 5600 IU 1 X WEEK PO
     Route: 048
  2. FOSAMAX PLUS D [Suspect]
     Indication: OSTEOPENIA
     Dosage: 35 MG 2800 IU 1 X WEEK PO, 70 MG 5600 IU 1 X WEEK PO
     Route: 048

REACTIONS (23)
  - DISCOMFORT [None]
  - BACK PAIN [None]
  - GLOSSODYNIA [None]
  - MUSCLE SPASMS [None]
  - PRURITUS [None]
  - MUSCLE TIGHTNESS [None]
  - EYELID DISORDER [None]
  - BURNING SENSATION [None]
  - JOINT LOCK [None]
  - TRISMUS [None]
  - ARTHROPATHY [None]
  - HYPOAESTHESIA [None]
  - ARTHRALGIA [None]
  - CONSTIPATION [None]
  - PAIN [None]
  - PAIN IN EXTREMITY [None]
  - PELVIC PAIN [None]
  - JAW DISORDER [None]
  - MYALGIA [None]
  - OEDEMA PERIPHERAL [None]
  - TENSION [None]
  - DIARRHOEA [None]
  - BONE PAIN [None]
